FAERS Safety Report 7374812-9 (Version None)
Quarter: 2011Q1

REPORT INFORMATION
  Report Type: 
  Country: None (occurrence: None)
  Receive Date: 20110325
  Receipt Date: 20101220
  Transmission Date: 20110831
  Serious: No
  Sender: FDA-Public Use
  Company Number: US-MYLANLABS-2010S1023433

PATIENT
  Age: 52 Year
  Sex: Female
  Weight: 90.72 kg

DRUGS (11)
  1. FENTANYL-100 [Suspect]
     Indication: NEUROPATHY PERIPHERAL
     Dosage: CHANGED Q. 72 HOURS.
     Route: 062
     Dates: start: 20101001
  2. HUMALOG [Concomitant]
     Indication: DIABETES MELLITUS
     Dosage: SLIDING SCALE
     Dates: start: 20100301
  3. XANAX [Concomitant]
     Indication: ANXIETY
     Dates: start: 20080101
  4. VENLAFAXINE [Concomitant]
     Indication: BIPOLAR DISORDER
     Dates: start: 20070101
  5. OXYBUTYNIN [Concomitant]
     Indication: URINARY INCONTINENCE
     Dates: start: 20090101
  6. LEVEMIR [Concomitant]
     Indication: DIABETES MELLITUS
     Dates: start: 20100301
  7. PRAVASTATIN [Concomitant]
     Indication: BLOOD CHOLESTEROL INCREASED
     Dates: start: 20090101
  8. NEURONTIN [Concomitant]
     Indication: NEUROPATHY PERIPHERAL
     Dates: start: 20080101
  9. LISINOPRIL [Concomitant]
     Indication: BLOOD PRESSURE INCREASED
     Dates: start: 20090101
  10. GEODON [Concomitant]
     Indication: BIPOLAR DISORDER
     Dates: start: 20070101
  11. KLOR-CON [Concomitant]

REACTIONS (1)
  - URTICARIA [None]
